FAERS Safety Report 9828910 (Version 1)
Quarter: 2014Q1

REPORT INFORMATION
  Report Type: Spontaneous
  Country: CN (occurrence: CN)
  Receive Date: 20140118
  Receipt Date: 20140118
  Transmission Date: 20141002
  Serious: Yes (Other)
  Sender: FDA-Public Use
  Company Number: CN-ABBVIE-14P-035-1191227-00

PATIENT
  Age: 25 Year
  Sex: Female

DRUGS (2)
  1. DEPAKINE CHRONO [Suspect]
     Indication: EPILEPSY
     Route: 048
     Dates: start: 201107
  2. DEPAKINE CHRONO [Suspect]
     Route: 048
     Dates: start: 201207

REACTIONS (11)
  - Tooth discolouration [Recovered/Resolved]
  - Epilepsy [Recovered/Resolved]
  - Cyanosis [Recovered/Resolved]
  - Foaming at mouth [Recovered/Resolved]
  - Trismus [Recovered/Resolved]
  - Tongue biting [Recovered/Resolved]
  - Fall [Recovered/Resolved]
  - Muscle twitching [Recovered/Resolved]
  - Headache [Recovered/Resolved]
  - Nausea [Recovered/Resolved]
  - Pain [Recovered/Resolved]
